FAERS Safety Report 5715363-4 (Version None)
Quarter: 2008Q2

REPORT INFORMATION
  Report Type: 
  Country: None (occurrence: None)
  Receive Date: 20080423
  Receipt Date: 20080414
  Transmission Date: 20081010
  Serious: Yes (Other)
  Sender: FDA-Public Use
  Company Number: US-PFIZER INC-2008032854

PATIENT
  Age: 15 Month
  Sex: Female

DRUGS (3)
  1. NIFEDIPINE [Suspect]
     Route: 064
  2. FLOMAX [Suspect]
     Route: 064
  3. ALL OTHER THERAPEUTIC PRODUCTS [Suspect]
     Route: 064

REACTIONS (4)
  - CEREBRAL PALSY [None]
  - CONVULSION [None]
  - DRUG EXPOSURE DURING PREGNANCY [None]
  - SENSORY INTEGRATIVE DYSFUNCTION [None]
